FAERS Safety Report 10430692 (Version 3)
Quarter: 2014Q4

REPORT INFORMATION
  Report Type: Spontaneous
  Country: JP (occurrence: JP)
  Receive Date: 20140904
  Receipt Date: 20141027
  Transmission Date: 20150528
  Serious: Yes (Hospitalization)
  Sender: FDA-Public Use
  Company Number: JP-US-EMD SERONO, INC.-7316794

PATIENT
  Age: 38 Year
  Sex: Female

DRUGS (4)
  1. SEROPHENE [Suspect]
     Active Substance: CLOMIPHENE CITRATE
     Route: 048
     Dates: start: 20110901, end: 20110905
  2. SEROPHENE [Suspect]
     Active Substance: CLOMIPHENE CITRATE
     Indication: OVULATION INDUCTION
     Dosage: 100MG
     Route: 048
  3. BUSERELIN [Concomitant]
     Active Substance: BUSERELIN
     Indication: OVULATION INDUCTION
     Dosage: 900 MICRO G
     Route: 065
  4. BUSERELIN [Concomitant]
     Active Substance: BUSERELIN
     Dosage: 900 MICRO G
     Route: 065
     Dates: start: 20110912

REACTIONS (2)
  - Superovulation [Recovered/Resolved]
  - Ectopic pregnancy [Recovered/Resolved]

NARRATIVE: CASE EVENT DATE: 20110914
